FAERS Safety Report 12503294 (Version 1)
Quarter: 2016Q2

REPORT INFORMATION
  Report Type: Spontaneous
  Country: US (occurrence: US)
  Receive Date: 20160628
  Receipt Date: 20160628
  Transmission Date: 20160815
  Serious: No
  Sender: FDA-Public Use
  Company Number: US-FERRINGPH-2016FE00417

PATIENT
  Age: 40 Year
  Sex: Female

DRUGS (1)
  1. BRAVELLE [Suspect]
     Active Substance: FOLLITROPIN\UROFOLLITROPIN
     Indication: PRODUCT USED FOR UNKNOWN INDICATION
     Dosage: UNK
     Dates: start: 201410

REACTIONS (1)
  - Biochemical pregnancy [Recovered/Resolved]

NARRATIVE: CASE EVENT DATE: 201502
